FAERS Safety Report 11083802 (Version 3)
Quarter: 2015Q2

REPORT INFORMATION
  Report Type: Spontaneous
  Country: US (occurrence: US)
  Receive Date: 20150501
  Receipt Date: 20150611
  Transmission Date: 20150821
  Serious: No
  Sender: FDA-Public Use
  Company Number: US-GLAXOSMITHKLINE-US2015GSK058610

PATIENT
  Sex: Male

DRUGS (1)
  1. VENTOLIN HFA [Suspect]
     Active Substance: ALBUTEROL SULFATE
     Indication: ASTHMA EXERCISE INDUCED
     Dosage: 2 PUFF(S), PRN
     Route: 055
     Dates: start: 20150427

REACTIONS (6)
  - Chest discomfort [Recovering/Resolving]
  - Hypersensitivity [Unknown]
  - Fatigue [Recovering/Resolving]
  - Pharyngeal oedema [Recovering/Resolving]
  - Throat tightness [Unknown]
  - Dyspnoea [Unknown]
